FAERS Safety Report 10420871 (Version 1)
Quarter: 2014Q3

REPORT INFORMATION
  Report Type: Spontaneous
  Country: US (occurrence: None)
  Receive Date: 20140829
  Receipt Date: 20140829
  Transmission Date: 20150326
  Serious: Yes (Other)
  Sender: FDA-Public Use
  Company Number: None

PATIENT
  Age: 75 Year
  Sex: Female

DRUGS (1)
  1. ACTHAR [Suspect]
     Active Substance: CORTICOTROPIN
     Indication: NEPHRITIC SYNDROME
     Route: 058
     Dates: start: 20140514, end: 20140815

REACTIONS (4)
  - Headache [None]
  - Blood pressure increased [None]
  - Protein urine present [None]
  - Fluid retention [None]

NARRATIVE: CASE EVENT DATE: 20140815
